FAERS Safety Report 6023441-8 (Version None)
Quarter: 2008Q4

REPORT INFORMATION
  Report Type: 
  Country: None (occurrence: None)
  Receive Date: 20081222
  Receipt Date: 20081119
  Transmission Date: 20090506
  Serious: No
  Sender: FDA-Public Use
  Company Number: ALL1-2008-03367

PATIENT
  Age: 11 Year
  Sex: Male
  Weight: 44.9 kg

DRUGS (2)
  1. VYVANSE [Suspect]
     Indication: ATTENTION DEFICIT/HYPERACTIVITY DISORDER
     Dosage: 30 MG, 1X/DAY:QD, ORAL
     Route: 048
     Dates: start: 20081111
  2. MULTIVITAMIN /00831701/ (VITAMINS NOS) [Concomitant]

REACTIONS (5)
  - DARK CIRCLES UNDER EYES [None]
  - DECREASED APPETITE [None]
  - DIZZINESS [None]
  - FATIGUE [None]
  - PALLOR [None]
